FAERS Safety Report 8142006-5 (Version None)
Quarter: 2012Q1

REPORT INFORMATION
  Report Type: 
  Country: None (occurrence: None)
  Receive Date: 20120216
  Receipt Date: 20120213
  Transmission Date: 20120608
  Serious: Yes (Life-Threatening, Hospitalization)
  Sender: FDA-Public Use
  Company Number: DE-B.I. PHARMACEUTICALS,INC./RIDGEFIELD-2012-DE-00217DE

PATIENT
  Sex: Male
  Weight: 82 kg

DRUGS (14)
  1. SLEEPING PILLS [Suspect]
  2. FUROSEMIDE [Concomitant]
     Dosage: 40 NR
  3. DIGITOXIN TAB [Concomitant]
     Dosage: 0.07 NR
     Dates: start: 20111021
  4. RESTEX [Suspect]
     Indication: RESTLESS LEGS SYNDROME
  5. KELTICAN FORTE [Concomitant]
     Dosage: 1 ANZ
  6. BISOPROLOL FUMARATE [Concomitant]
     Dosage: 2.5 MG
  7. PRAMIPEXOLE DIHYDROCHLORIDE [Suspect]
     Indication: RESTLESS LEGS SYNDROME
     Dosage: 0.088 MG
     Dates: start: 20111021, end: 20111110
  8. DELTERAN [Concomitant]
     Dosage: 400 MG
  9. PANTOPRAZOLE [Concomitant]
     Dosage: 40 MG
  10. PRAMIPEXOLE DIHYDROCHLORIDE [Suspect]
     Dosage: 1.5 ANZ
     Dates: start: 20111111, end: 20120101
  11. NEUPRO [Suspect]
     Indication: RESTLESS LEGS SYNDROME
     Route: 062
  12. TAMSUNAR [Concomitant]
     Dosage: 0.4 MG
  13. MARCUMAR [Concomitant]
     Dosage: ACCORDING PLAN
  14. SIMVABETA [Concomitant]
     Dosage: 10 MG

REACTIONS (6)
  - MUSCLE SPASMS [None]
  - INSOMNIA [None]
  - RESTLESSNESS [None]
  - CONVULSION [None]
  - RESTLESS LEGS SYNDROME [None]
  - DRUG INEFFECTIVE [None]
